FAERS Safety Report 7694496-X (Version None)
Quarter: 2011Q3

REPORT INFORMATION
  Report Type: 
  Country: None (occurrence: None)
  Receive Date: 20110819
  Receipt Date: 20110808
  Transmission Date: 20111222
  Serious: Yes (Life-Threatening, Other)
  Sender: FDA-Public Use
  Company Number: PHHY2011AR71417

PATIENT
  Sex: Male

DRUGS (4)
  1. ATENOLOL [Concomitant]
  2. DIOVAN [Suspect]
     Dosage: 2 DF DAILY (80 MG)
  3. AMIODARONE HCL [Concomitant]
  4. DIOVAN [Suspect]
     Indication: HYPERTENSION
     Dosage: 1 DF DAILY (80 MG)
     Dates: start: 20101201

REACTIONS (5)
  - FEELING ABNORMAL [None]
  - BRADYCARDIA [None]
  - ANXIETY [None]
  - HYPERTENSIVE CRISIS [None]
  - DYSPNOEA [None]
